FAERS Safety Report 6929184-8 (Version None)
Quarter: 2010Q3

REPORT INFORMATION
  Report Type: 
  Country: None (occurrence: None)
  Receive Date: 20100812
  Receipt Date: 20100803
  Transmission Date: 20110219
  Serious: Yes (Hospitalization)
  Sender: FDA-Public Use
  Company Number: 663730

PATIENT
  Age: 82 Year
  Sex: Male

DRUGS (1)
  1. EPIRUBICIN HYDROCHLORIDE [Suspect]
     Indication: BLADDER TRANSITIONAL CELL CARCINOMA STAGE III
     Dosage: 50 ML MILLILITRE (S), INTRAVESICAL
     Route: 043

REACTIONS (4)
  - BLADDER PERFORATION [None]
  - CELLULITIS [None]
  - EXTRAVASATION [None]
  - MALAISE [None]
